FAERS Safety Report 26197903 (Version 1)
Quarter: 2025Q4

REPORT INFORMATION
  Report Type: Spontaneous
  Country: GB (occurrence: GB)
  Receive Date: 20251224
  Receipt Date: 20251224
  Transmission Date: 20260118
  Serious: Yes (Death, Life-Threatening, Other)
  Sender: ELI LILLY AND COMPANY
  Company Number: GB-ELI_LILLY_AND_COMPANY-GB202512029112

PATIENT
  Age: 37 Year
  Sex: Male

DRUGS (1)
  1. LEBRIKIZUMAB [Suspect]
     Active Substance: LEBRIKIZUMAB
     Indication: Adverse drug reaction
     Dosage: UNK, UNKNOWN
     Route: 065
     Dates: start: 202503

REACTIONS (3)
  - Gastrointestinal haemorrhage [Fatal]
  - Cardiac failure chronic [Fatal]
  - Alcoholism [Fatal]
